FAERS Safety Report 9198419 (Version 1)
Quarter: 2013Q1

REPORT INFORMATION
  Report Type: Spontaneous
  Country: US (occurrence: None)
  Receive Date: 20130327
  Receipt Date: 20130327
  Transmission Date: 20140127
  Serious: No
  Sender: FDA-Public Use
  Company Number: None

PATIENT
  Sex: Female

DRUGS (2)
  1. TOPIRAMATE ?100MG [Suspect]
  2. TOPIRAMATE 50 MG [Suspect]
     Dosage: 150MG AT BEDTIME PO
     Route: 048

REACTIONS (1)
  - Nephrolithiasis [None]
